FAERS Safety Report 5164164-7 (Version None)
Quarter: 2006Q4

REPORT INFORMATION
  Report Type: 
  Country: None (occurrence: None)
  Receive Date: 20061204
  Receipt Date: 20061122
  Transmission Date: 20070319
  Serious: Yes (Other)
  Sender: FDA-Public Use
  Company Number: US-JNJFOC-20061106010

PATIENT
  Sex: Female
  Weight: 72.58 kg

DRUGS (16)
  1. REMICADE [Suspect]
     Indication: CROHN'S DISEASE
  2. ASACOL [Concomitant]
  3. WELLBUTRIN [Concomitant]
     Indication: DEPRESSION
  4. LEXAPRO [Concomitant]
  5. LEXAPRO [Concomitant]
     Indication: DEPRESSION
  6. AMBIEN [Concomitant]
  7. KLONAPIN [Concomitant]
  8. MUCINEX [Concomitant]
  9. ALLEGRA [Concomitant]
  10. SPIRIVA [Concomitant]
  11. CLIMARA [Concomitant]
  12. PROVERA [Concomitant]
  13. CALTRATE PLUS D [Concomitant]
  14. FLONASE [Concomitant]
  15. ANUSOL [Concomitant]
     Indication: HAEMORRHOIDS
  16. ALLERGY SHOT [Concomitant]
     Indication: MYCOTIC ALLERGY

REACTIONS (9)
  - CORNEAL ABRASION [None]
  - COUGH [None]
  - DRY EYE [None]
  - GLUCOSE TOLERANCE IMPAIRED [None]
  - HAEMATOCHEZIA [None]
  - NEUTROPHIL COUNT DECREASED [None]
  - PAIN [None]
  - RED BLOOD CELL COUNT DECREASED [None]
  - WHITE BLOOD CELL COUNT DECREASED [None]
